FAERS Safety Report 5268579-8 (Version None)
Quarter: 2007Q1

REPORT INFORMATION
  Report Type: 
  Country: None (occurrence: None)
  Receive Date: 20070313
  Receipt Date: 20070306
  Transmission Date: 20070707
  Serious: Yes (Death, Life-Threatening)
  Sender: FDA-Public Use
  Company Number: 15065

PATIENT
  Age: 68 Year
  Sex: Male

DRUGS (7)
  1. CYTARABINE [Suspect]
     Indication: ACUTE MYELOID LEUKAEMIA
     Dosage: 20 MG/M2 PER_CYCLE SC
     Route: 058
     Dates: start: 20060823, end: 20061004
  2. CIPROFLOXACIN [Concomitant]
  3. BISEPTOL [Concomitant]
  4. ORUNGAL [Concomitant]
  5. FORTUM /00559701/. MFR: NOT SPECIFIED [Concomitant]
  6. VANCOMYCIN [Concomitant]
  7. METROGYL [Concomitant]

REACTIONS (10)
  - DISEASE PROGRESSION [None]
  - DRUG INEFFECTIVE [None]
  - GASTROINTESTINAL EROSION [None]
  - HAEMOGLOBIN DECREASED [None]
  - HAEMORRHAGE [None]
  - NEUTROPHIL COUNT DECREASED [None]
  - PLATELET COUNT DECREASED [None]
  - POISONING [None]
  - SEPTIC SHOCK [None]
  - WHITE BLOOD CELL COUNT DECREASED [None]
